FAERS Safety Report 26125269 (Version 1)
Quarter: 2025Q4

REPORT INFORMATION
  Report Type: Report from Study
  Country: ZA (occurrence: ZA)
  Receive Date: 20251205
  Receipt Date: 20251205
  Transmission Date: 20260118
  Serious: Yes (Other)
  Sender: ROCHE
  Company Number: ZA-ROCHE-10000445750

PATIENT
  Age: 62 Year
  Sex: Female

DRUGS (2)
  1. VABYSMO [Suspect]
     Active Substance: FARICIMAB-SVOA
     Indication: Diabetic eye disease
     Dosage: 2ND INJECTION: 05 DECEMBER 2025
     Route: 050
     Dates: start: 20251031
  2. VABYSMO [Suspect]
     Active Substance: FARICIMAB-SVOA
     Indication: Diabetic retinal oedema

REACTIONS (4)
  - Off label use [Unknown]
  - Visual impairment [Unknown]
  - Retinal thickening [Unknown]
  - Eye haemorrhage [Unknown]
